FAERS Safety Report 6661233-7 (Version None)
Quarter: 2010Q1

REPORT INFORMATION
  Report Type: 
  Country: None (occurrence: None)
  Receive Date: 20100331
  Receipt Date: 20100326
  Transmission Date: 20100710
  Serious: Yes (Other)
  Sender: FDA-Public Use
  Company Number: CA-ROCHE-693802

PATIENT
  Age: 25 Year
  Sex: Female

DRUGS (4)
  1. ACCUTANE [Suspect]
     Indication: DRUG USE FOR UNKNOWN INDICATION
     Route: 048
  2. ACCUTANE [Suspect]
     Route: 048
  3. CELEXA [Concomitant]
  4. YASMIN [Concomitant]
     Dosage: DRUG RPTD: YASMIN 28

REACTIONS (1)
  - ECCHYMOSIS [None]
